FAERS Safety Report 4501474-8 (Version None)
Quarter: 2004Q4

REPORT INFORMATION
  Report Type: 
  Country: None (occurrence: None)
  Receive Date: 20040928
  Receipt Date: 20040819
  Transmission Date: 20050328
  Serious: No
  Sender: FDA-Public Use
  Company Number: 04P-163-0271019-00

PATIENT
  Age: 65 Year
  Sex: Female
  Weight: 108.8633 kg

DRUGS (11)
  1. HUMIRA [Suspect]
     Indication: RHEUMATOID ARTHRITIS
     Dosage: 40 MG, 1 IN 2 WK, SUBCUTANEOUS
     Route: 058
     Dates: start: 20040401, end: 20040805
  2. DIGOXIN [Concomitant]
  3. ATENOLOL [Concomitant]
  4. VENLAFAXINE HYDROCHLORIDE [Concomitant]
  5. GLIBOMET [Concomitant]
  6. PREDNISONE [Concomitant]
  7. FOLIC ACID [Concomitant]
  8. ZELNORM [Concomitant]
  9. LANSOPRAZOLE [Concomitant]
  10. FENOFIBRATE [Concomitant]
  11. COUMADIN [Concomitant]

REACTIONS (3)
  - COUGH [None]
  - HEADACHE [None]
  - SPUTUM DISCOLOURED [None]
